FAERS Safety Report 4560382-7 (Version None)
Quarter: 2005Q1

REPORT INFORMATION
  Report Type: 
  Country: None (occurrence: None)
  Receive Date: 20050125
  Receipt Date: 20050114
  Transmission Date: 20050727
  Serious: Yes (Other)
  Sender: FDA-Public Use
  Company Number: DE-JNJFOC-20050104084

PATIENT
  Age: 50 Year
  Sex: Male

DRUGS (1)
  1. TRAMAL [Suspect]
     Indication: INTERVERTEBRAL DISC DISORDER
     Route: 049

REACTIONS (2)
  - AGGRESSION [None]
  - DRUG ABUSER [None]
